FAERS Safety Report 6554483-1 (Version None)
Quarter: 2010Q1

REPORT INFORMATION
  Report Type: 
  Country: None (occurrence: None)
  Receive Date: 20100127
  Receipt Date: 20100113
  Transmission Date: 20100710
  Serious: Yes (Hospitalization)
  Sender: FDA-Public Use
  Company Number: SE-MYLANLABS-2010S1000585

PATIENT
  Age: 70 Year
  Sex: Female

DRUGS (12)
  1. SELEGILIN [Suspect]
     Indication: PARKINSON'S DISEASE
     Route: 048
  2. DIGOXIN [Suspect]
     Indication: CARDIAC FIBRILLATION
     Route: 048
  3. ATACAND [Concomitant]
     Indication: DRUG USE FOR UNKNOWN INDICATION
  4. BISOPROLOL FUMARATE [Concomitant]
     Indication: DRUG USE FOR UNKNOWN INDICATION
  5. SIMVASTATIN [Concomitant]
     Indication: DRUG USE FOR UNKNOWN INDICATION
  6. TRIOBE /01079901/ [Concomitant]
     Indication: DRUG USE FOR UNKNOWN INDICATION
  7. ATARAX [Concomitant]
     Indication: DRUG USE FOR UNKNOWN INDICATION
  8. WARAN [Concomitant]
     Indication: DRUG USE FOR UNKNOWN INDICATION
  9. IMPUGAN [Concomitant]
     Indication: DRUG USE FOR UNKNOWN INDICATION
  10. MADOPARK [Concomitant]
     Indication: DRUG USE FOR UNKNOWN INDICATION
  11. IMOVANE [Concomitant]
     Indication: DRUG USE FOR UNKNOWN INDICATION
  12. SPIRONOLAKTON [Concomitant]
     Indication: DRUG USE FOR UNKNOWN INDICATION

REACTIONS (2)
  - DRUG LEVEL INCREASED [None]
  - ORTHOSTATIC HYPOTENSION [None]
